FAERS Safety Report 19715567 (Version 2)
Quarter: 2022Q3

REPORT INFORMATION
  Report Type: Spontaneous
  Country: GB (occurrence: GB)
  Receive Date: 20210818
  Receipt Date: 20220910
  Transmission Date: 20221027
  Serious: Yes (Life-Threatening, Hospitalization, Other)
  Sender: FDA-Public Use
  Company Number: GB-LUPIN PHARMACEUTICALS INC.-2021-14945

PATIENT
  Age: 38 Year

DRUGS (1)
  1. AMLODIPINE [Suspect]
     Active Substance: AMLODIPINE BESYLATE
     Indication: Product used for unknown indication
     Dosage: UNK (DOSE: UNKNOWN QUANTITY)
     Route: 065

REACTIONS (5)
  - Unresponsive to stimuli [Recovered/Resolved]
  - Hyperglycaemia [Recovered/Resolved]
  - Hypotension [Recovering/Resolving]
  - Toxicity to various agents [Unknown]
  - Intentional overdose [Unknown]

NARRATIVE: CASE EVENT DATE: 20200701
